FAERS Safety Report 6130770-6 (Version None)
Quarter: 2009Q1

REPORT INFORMATION
  Report Type: 
  Country: None (occurrence: None)
  Receive Date: 20090325
  Receipt Date: 20090318
  Transmission Date: 20090719
  Serious: Yes (Hospitalization)
  Sender: FDA-Public Use
  Company Number: US-ASTRAZENECA-2009UW07054

PATIENT
  Age: 22685 Day
  Sex: Male

DRUGS (2)
  1. CASODEX [Suspect]
     Route: 048
  2. ZOLADEX [Suspect]
     Route: 058

REACTIONS (3)
  - COUGH [None]
  - DRUG DOSE OMISSION [None]
  - RIB FRACTURE [None]
